FAERS Safety Report 23392061 (Version 1)
Quarter: 2024Q1

REPORT INFORMATION
  Report Type: Spontaneous
  Country: US (occurrence: US)
  Receive Date: 20240111
  Receipt Date: 20240111
  Transmission Date: 20240410
  Serious: No
  Sender: FDA-Public Use
  Company Number: US-LUNDBECK-DKLU3070661

PATIENT
  Sex: Female

DRUGS (3)
  1. VYEPTI [Suspect]
     Active Substance: EPTINEZUMAB-JJMR
     Indication: Migraine
     Route: 041
     Dates: start: 20231111
  2. UBRELVY [Concomitant]
     Active Substance: UBROGEPANT
     Indication: Migraine
     Route: 065
  3. BUTALBITAL [Concomitant]
     Active Substance: BUTALBITAL
     Indication: Migraine
     Route: 065

REACTIONS (3)
  - Therapeutic response shortened [Not Recovered/Not Resolved]
  - Somnolence [Not Recovered/Not Resolved]
  - Somnolence [Not Recovered/Not Resolved]
